FAERS Safety Report 7161531-7 (Version None)
Quarter: 2010Q4

REPORT INFORMATION
  Report Type: 
  Country: None (occurrence: None)
  Receive Date: 20101123
  Receipt Date: 20101011
  Transmission Date: 20110411
  Serious: No
  Sender: FDA-Public Use
  Company Number: 020164

PATIENT
  Sex: Male
  Weight: 83.9 kg

DRUGS (1)
  1. CIMZIA [Suspect]
     Indication: CROHN'S DISEASE
     Dosage: (TWO SHOTS, EVERY MONTH SUBCUTANEOUS)
     Route: 058
     Dates: start: 20100407

REACTIONS (1)
  - SINUSITIS [None]
